FAERS Safety Report 16855744 (Version 2)
Quarter: 2019Q3

REPORT INFORMATION
  Report Type: Spontaneous
  Country: FR (occurrence: FR)
  Receive Date: 20190926
  Receipt Date: 20190926
  Transmission Date: 20191005
  Serious: Yes (Other)
  Sender: FDA-Public Use
  Company Number: PHHY2019FR220415

PATIENT
  Age: 43 Year
  Sex: Female

DRUGS (3)
  1. METHYLPREDNISOLONE. [Suspect]
     Active Substance: METHYLPREDNISOLONE
     Indication: GASTRITIS
     Dosage: 1 MG/KG, QD
     Route: 042
  2. NIVOLUMAB [Concomitant]
     Active Substance: NIVOLUMAB
     Indication: SUPERFICIAL SPREADING MELANOMA STAGE IV
     Dosage: 3 MG/KG, Q2W
     Route: 042
     Dates: start: 201611
  3. PREDNISOLONE. [Suspect]
     Active Substance: PREDNISOLONE
     Indication: GASTRITIS
     Dosage: 1 MG/KG, QD
     Route: 048

REACTIONS (8)
  - Duodenal stenosis [Unknown]
  - Pyelonephritis [Unknown]
  - Product use in unapproved indication [Unknown]
  - Gastritis [Unknown]
  - Sepsis [Recovering/Resolving]
  - Staphylococcal bacteraemia [Recovering/Resolving]
  - Splenic abscess [Unknown]
  - Condition aggravated [Unknown]
